FAERS Safety Report 19002633 (Version 1)
Quarter: 2021Q1

REPORT INFORMATION
  Report Type: Spontaneous
  Country: US (occurrence: US)
  Receive Date: 20210312
  Receipt Date: 20210312
  Transmission Date: 20210420
  Serious: No
  Sender: FDA-Public Use
  Company Number: US-ALLERGAN-2013794US

PATIENT
  Age: 56 Year
  Sex: Female

DRUGS (2)
  1. ESTRADIOL                          /00045402/ [Concomitant]
     Active Substance: ESTRADIOL VALERATE
     Dosage: APPLYING EVERY 3?4 DAYS
     Route: 062
  2. ESTRACE [Suspect]
     Active Substance: ESTRADIOL
     Indication: PRODUCT USED FOR UNKNOWN INDICATION
     Dosage: UNK
     Dates: start: 201912, end: 202003

REACTIONS (3)
  - Therapy interrupted [Unknown]
  - Inability to afford medication [Unknown]
  - Hot flush [Unknown]

NARRATIVE: CASE EVENT DATE: 202003
